FAERS Safety Report 9527471 (Version 1)
Quarter: 2013Q3

REPORT INFORMATION
  Report Type: Spontaneous
  Country: US (occurrence: US)
  Receive Date: 20130917
  Receipt Date: 20130917
  Transmission Date: 20140515
  Serious: No
  Sender: FDA-Public Use
  Company Number: US-B.I. PHARMACEUTICALS,INC./RIDGEFIELD-2013-BI-27922BP

PATIENT
  Age: 41 Year
  Sex: Female
  Weight: 100 kg

DRUGS (5)
  1. COMBIVENT [Suspect]
     Indication: CHRONIC OBSTRUCTIVE PULMONARY DISEASE
     Dosage: STRENGTH: 20 MCG / 100 MCG; DAILY DOSE: 80 MCG 400 MCG
     Route: 055
     Dates: start: 20130903
  2. XANAX [Concomitant]
     Indication: ANXIETY
     Dosage: 1.5 MG
     Route: 048
  3. SOMA [Concomitant]
     Indication: FIBROMYALGIA
     Dosage: 700 MG
     Route: 048
  4. ZIAC [Concomitant]
     Indication: HYPERTENSION
     Dosage: STRENGTH: 5/6.25 MG; DAILY DOSE: 5/6.25 MG
     Route: 048
  5. HYDROCODONE [Concomitant]
     Indication: FIBROMYALGIA
     Dosage: STRENGTH: 10/500 MG; DAILY DOSE: 30/1500 MG
     Route: 048

REACTIONS (3)
  - Dyspnoea [Not Recovered/Not Resolved]
  - Wheezing [Not Recovered/Not Resolved]
  - Choking [Not Recovered/Not Resolved]
